FAERS Safety Report 24267920 (Version 2)
Quarter: 2025Q3

REPORT INFORMATION
  Report Type: Spontaneous
  Country: EU (occurrence: EU)
  Receive Date: 20240830
  Receipt Date: 20250723
  Transmission Date: 20251021
  Serious: Yes (Congenital Anomaly)
  Sender: ROCHE
  Company Number: None

PATIENT
  Age: 5 Month
  Sex: Female
  Weight: 2 kg

DRUGS (2)
  1. RITUXIMAB [Suspect]
     Active Substance: RITUXIMAB
     Indication: Product used for unknown indication
     Route: 064
  2. RITUXIMAB [Suspect]
     Active Substance: RITUXIMAB
     Route: 064
     Dates: start: 20230803, end: 20230803

REACTIONS (5)
  - Hypoacusis [Not Recovered/Not Resolved]
  - Cleft palate [Not Recovered/Not Resolved]
  - Microcephaly [Not Recovered/Not Resolved]
  - Foetal exposure during pregnancy [Unknown]
  - Low birth weight baby [Recovered/Resolved]

NARRATIVE: CASE EVENT DATE: 20240311
